FAERS Safety Report 18634196 (Version 1)
Quarter: 2020Q4

REPORT INFORMATION
  Report Type: Spontaneous
  Country: NL (occurrence: RO)
  Receive Date: 20201218
  Receipt Date: 20201218
  Transmission Date: 20210114
  Serious: Yes (Other)
  Sender: FDA-Public Use
  Company Number: RO-FRESENIUS KABI-FK202013527

PATIENT
  Age: 41 Year
  Sex: Female

DRUGS (8)
  1. TRASTUZUMAB. [Suspect]
     Active Substance: TRASTUZUMAB
     Indication: BREAST NEOPLASM
     Dosage: 8 MG/KGC THEN 6 MG/KGC Q3W
     Route: 065
     Dates: start: 201909
  2. TRASTUZUMAB. [Suspect]
     Active Substance: TRASTUZUMAB
     Dosage: 8 MG/KGC THEN 6 MG/KGC Q3W
     Route: 065
  3. GOSERELIN ACETATE [Suspect]
     Active Substance: GOSERELIN ACETATE
     Indication: BREAST NEOPLASM
     Route: 065
  4. ZOLEDRONIC ACID (MANUFACTURER UNKNOWN) [Suspect]
     Active Substance: ZOLEDRONIC ACID
     Indication: BREAST NEOPLASM
     Dosage: Q4W
     Route: 065
  5. TAMOXIFEN [Suspect]
     Active Substance: TAMOXIFEN
     Indication: BREAST NEOPLASM
     Route: 065
  6. PERTUZUMAB. [Suspect]
     Active Substance: PERTUZUMAB
     Indication: BREAST NEOPLASM
     Dosage: Q3W
     Route: 065
  7. PERTUZUMAB. [Suspect]
     Active Substance: PERTUZUMAB
     Route: 065
     Dates: start: 201909
  8. DOCETAXEL (MANUFACTURER UNKNOWN) [Suspect]
     Active Substance: DOCETAXEL
     Indication: BREAST NEOPLASM
     Route: 065

REACTIONS (4)
  - Neuropathy peripheral [Unknown]
  - Osteitis condensans [Unknown]
  - Central nervous system lesion [Unknown]
  - Lymphadenopathy [Unknown]
